FAERS Safety Report 8814981 (Version 2)
Quarter: 2014Q3

REPORT INFORMATION
  Report Type: Report from Study
  Country: US (occurrence: US)
  Receive Date: 20120928
  Receipt Date: 20140805
  Transmission Date: 20150326
  Serious: Yes (Death, Other)
  Sender: FDA-Public Use
  Company Number: US-ROCHE-1104076

PATIENT
  Sex: Female

DRUGS (3)
  1. HERCEPTIN [Suspect]
     Active Substance: TRASTUZUMAB
     Indication: OVARIAN CANCER
     Route: 065
     Dates: start: 200812
  2. HERCEPTIN [Suspect]
     Active Substance: TRASTUZUMAB
     Dosage: MAINTENANCE DOSE
     Route: 042
  3. TAXOL [Concomitant]
     Active Substance: PACLITAXEL
     Route: 065
     Dates: start: 200212

REACTIONS (4)
  - Disease progression [Unknown]
  - Off label use [Unknown]
  - Ascites [Unknown]
  - Death [Fatal]
